FAERS Safety Report 5810354-7 (Version None)
Quarter: 2008Q3

REPORT INFORMATION
  Report Type: 
  Country: None (occurrence: None)
  Receive Date: 20080715
  Receipt Date: 20080522
  Transmission Date: 20090109
  Serious: No
  Sender: FDA-Public Use
  Company Number: A0729230A

PATIENT
  Age: 30 Year
  Sex: Male

DRUGS (1)
  1. IMITREX [Suspect]
     Indication: MIGRAINE
     Dosage: 50MG AS REQUIRED
     Route: 048
     Dates: start: 19950101

REACTIONS (3)
  - DRUG INEFFECTIVE [None]
  - FEELING JITTERY [None]
  - TREMOR [None]
